FAERS Safety Report 6710720-1 (Version None)
Quarter: 2010Q1

REPORT INFORMATION
  Report Type: 
  Country: None (occurrence: None)
  Receive Date: 20100316
  Receipt Date: 20100316
  Transmission Date: 20100710
  Serious: Yes (Life-Threatening)
  Sender: FDA-Public Use
  Company Number: None

PATIENT
  Age: 48 Year
  Sex: Male
  Weight: 49.8957 kg

DRUGS (4)
  1. UFH -UNFRACTIONATED [Suspect]
     Indication: ANTICOAGULANT THERAPY
     Dosage: 5000IU-IV-
     Dates: start: 20090630, end: 20090716
  2. UFH -UNFRACTIONATED [Suspect]
     Indication: ANTICOAGULANT THERAPY
     Dosage: , 7500-SC,
     Dates: start: 20090630, end: 20090716
  3. UFH -UNFRACTIONATED [Suspect]
     Indication: ANTICOAGULANT THERAPY
     Dosage: 15000-NK-
     Dates: start: 20090630, end: 20090716
  4. ENOXAPARIN SODIUM [Suspect]
     Indication: ANTICOAGULANT THERAPY
     Dosage: 20 ML

REACTIONS (1)
  - GRAND MAL CONVULSION [None]
